FAERS Safety Report 8047600-8 (Version None)
Quarter: 2012Q1

REPORT INFORMATION
  Report Type: 
  Country: None (occurrence: None)
  Receive Date: 20120116
  Receipt Date: 20120113
  Transmission Date: 20120608
  Serious: Yes (Life-Threatening)
  Sender: FDA-Public Use
  Company Number: US-GLAXOSMITHKLINE-A0961406A

PATIENT
  Age: 60 Year
  Sex: Female

DRUGS (11)
  1. ASTELIN [Concomitant]
  2. ZILEUTON [Concomitant]
  3. PULMICORT [Concomitant]
  4. ADVAIR DISKUS 100/50 [Suspect]
     Indication: ASTHMA
     Dosage: 1PUFF TWICE PER DAY
     Route: 055
     Dates: start: 20050101
  5. NASONEX [Concomitant]
  6. CALCIUM [Concomitant]
  7. PROTONIX [Concomitant]
  8. VITAMIN D [Concomitant]
  9. QVAR 40 [Concomitant]
  10. LOVAZA [Concomitant]
  11. PROBIOTICS [Concomitant]

REACTIONS (4)
  - ATRIAL FIBRILLATION [None]
  - BLOOD PRESSURE FLUCTUATION [None]
  - DIZZINESS [None]
  - HEART RATE INCREASED [None]
